FAERS Safety Report 8042087-3 (Version None)
Quarter: 2012Q1

REPORT INFORMATION
  Report Type: 
  Country: None (occurrence: None)
  Receive Date: 20120112
  Receipt Date: 20120111
  Transmission Date: 20120608
  Serious: Yes (Other)
  Sender: FDA-Public Use
  Company Number: FR-SANOFI-AVENTIS-2011SA029132

PATIENT
  Age: 67 Year
  Sex: Male

DRUGS (3)
  1. ASPIRIN [Suspect]
     Route: 048
     Dates: start: 20050101, end: 20110101
  2. SIMVASTATIN [Concomitant]
  3. PLAVIX [Suspect]
     Route: 048
     Dates: start: 20110301, end: 20110401

REACTIONS (1)
  - FIXED ERUPTION [None]
